FAERS Safety Report 25887579 (Version 1)
Quarter: 2025Q4

REPORT INFORMATION
  Report Type: Spontaneous
  Country: MY (occurrence: MY)
  Receive Date: 20251007
  Receipt Date: 20251007
  Transmission Date: 20260117
  Serious: Yes (Hospitalization, Other)
  Sender: BOEHRINGER INGELHEIM
  Company Number: MY-BoehringerIngelheim-2025-BI-099792

PATIENT
  Age: 70 Year
  Sex: Male
  Weight: 48.50 kg

DRUGS (17)
  1. NINTEDANIB [Suspect]
     Active Substance: NINTEDANIB
     Indication: Idiopathic pulmonary fibrosis
     Route: 048
     Dates: start: 20240313, end: 20240415
  2. NINTEDANIB [Suspect]
     Active Substance: NINTEDANIB
     Route: 048
     Dates: start: 20240416, end: 20250812
  3. ATORVASTATIN [Concomitant]
     Active Substance: ATORVASTATIN
     Indication: Dyslipidaemia
     Dosage: MEDICATION STARTED PRIOR TO INFORMED CONSENT* DOSE FORM: * DOSE FREQUENCY: * DOSE: 0
     Dates: start: 2016, end: 20250617
  4. PANTOPRAZOLE [Concomitant]
     Active Substance: PANTOPRAZOLE
     Indication: Prophylaxis
     Dosage: MEDICATION STARTED PRIOR TO INFORMED CONSENT AND IS STILL ONGOING* DOSE FORM: * DOSE FREQUENCY: * DOSE: 0
  5. LOPERAMIDE [Concomitant]
     Active Substance: LOPERAMIDE
     Indication: Prophylaxis
     Dosage: MEDICATION STARTED PRIOR TO INFORMED CONSENT AND IS STILL ONGOING* DOSE FORM: * DOSE FREQUENCY: * DOSE: 0
  6. Metformin XR 1000mg [Concomitant]
     Indication: Diabetes mellitus
     Dates: start: 2016, end: 20250617
  7. GLICLAZIDE [Concomitant]
     Active Substance: GLICLAZIDE
     Indication: Diabetes mellitus
     Dosage: MEDICATION STARTED PRIOR TO INFORMED CONSENT AND IS STILL ONGOING* DOSE FORM: * DOSE FREQUENCY: * DOSE: 0
  8. Omega capsule Fish Oil [Concomitant]
     Indication: Prophylaxis
  9. ORS (Oral Rehyrdration Salt) [Concomitant]
     Indication: Prophylaxis
     Dosage: MEDICATION STARTED PRIOR TO INFORMED CONSENT AND IS STILL ONGOING* DOSE FORM: * DOSE FREQUENCY: * DOSE: 0
  10. TRAMADOL [Concomitant]
     Active Substance: TRAMADOL
     Indication: Paraesthesia
  11. PREGABALIN [Concomitant]
     Active Substance: PREGABALIN
     Indication: Paraesthesia
     Dosage: OD/BD
     Dates: start: 20250526, end: 20250618
  12. GABAPENTIN [Concomitant]
     Active Substance: GABAPENTIN
     Indication: Product used for unknown indication
  13. Ketoprofen Gel [Concomitant]
     Indication: Osteoarthritis
  14. METHYL SALICYLATE 25% [Concomitant]
     Active Substance: METHYL SALICYLATE
     Indication: Osteoarthritis
  15. Metacobalamine 500mg [Concomitant]
     Indication: Osteoarthritis
  16. MAGNESIUM TRISILICATE [Concomitant]
     Active Substance: MAGNESIUM TRISILICATE
     Indication: Product used for unknown indication
  17. BI-1819479 [Concomitant]
     Active Substance: BI-1819479
     Indication: Idiopathic pulmonary fibrosis

REACTIONS (5)
  - Acute kidney injury [Recovered/Resolved]
  - Diarrhoea [Recovered/Resolved]
  - Constipation [Not Recovered/Not Resolved]
  - Hepatic enzyme increased [Recovered/Resolved]
  - Abdominal pain [Recovered/Resolved]

NARRATIVE: CASE EVENT DATE: 20250101
